FAERS Safety Report 6671465-X (Version None)
Quarter: 2010Q2

REPORT INFORMATION
  Report Type: 
  Country: None (occurrence: None)
  Receive Date: 20100406
  Receipt Date: 20100406
  Transmission Date: 20101027
  Serious: No
  Sender: FDA-Public Use
  Company Number: None

PATIENT

DRUGS (1)
  1. FENTANYL [Suspect]
     Indication: PAIN MANAGEMENT
     Dosage: AS NOTED ABOVE AND IN REPORT

REACTIONS (2)
  - PRODUCT COLOUR ISSUE [None]
  - PRODUCT QUALITY ISSUE [None]
